FAERS Safety Report 13422820 (Version 1)
Quarter: 2017Q2

REPORT INFORMATION
  Report Type: Spontaneous
  Country: US (occurrence: US)
  Receive Date: 20170408
  Receipt Date: 20170408
  Transmission Date: 20170830
  Serious: Yes (Hospitalization)
  Sender: FDA-Public Use
  Company Number: None

PATIENT
  Age: 76 Year
  Sex: Male
  Weight: 97.6 kg

DRUGS (1)
  1. MEMANTINE HYDROCHLORIDE. [Suspect]
     Active Substance: MEMANTINE HYDROCHLORIDE
     Dates: end: 20170322

REACTIONS (7)
  - Blood bilirubin increased [None]
  - Asthenia [None]
  - White blood cell count increased [None]
  - Loss of personal independence in daily activities [None]
  - Blood glucose increased [None]
  - Pneumonia [None]
  - Confusional state [None]

NARRATIVE: CASE EVENT DATE: 20170323
